FAERS Safety Report 5156790-6 (Version None)
Quarter: 2006Q4

REPORT INFORMATION
  Report Type: 
  Country: None (occurrence: None)
  Receive Date: 20061115
  Receipt Date: 20061103
  Transmission Date: 20070319
  Serious: Yes (Hospitalization)
  Sender: FDA-Public Use
  Company Number: 2006137408

PATIENT
  Age: 71 Year
  Sex: Male
  Weight: 76.8 kg

DRUGS (1)
  1. SUTENT [Suspect]
     Indication: RENAL CELL CARCINOMA STAGE UNSPECIFIED
     Dosage: 37.5 MG (12.5 MG, DAILY, 4WEEK PM 2 OFF), ORAL
     Route: 048
     Dates: start: 20060301

REACTIONS (8)
  - ASTHENIA [None]
  - BLOOD CALCIUM DECREASED [None]
  - BLOOD POTASSIUM DECREASED [None]
  - BLOOD SODIUM DECREASED [None]
  - DEHYDRATION [None]
  - DIARRHOEA [None]
  - RENAL IMPAIRMENT [None]
  - SKIN TOXICITY [None]
